FAERS Safety Report 4634919-3 (Version None)
Quarter: 2005Q2

REPORT INFORMATION
  Report Type: 
  Country: None (occurrence: None)
  Receive Date: 20050412
  Receipt Date: 20050328
  Transmission Date: 20051028
  Serious: Yes (Disabling)
  Sender: FDA-Public Use
  Company Number: 2005AP01700

PATIENT
  Age: 61 Year
  Sex: Female
  Weight: 50 kg

DRUGS (5)
  1. ANAPEINE [Suspect]
     Indication: EPIDURAL ANAESTHESIA
     Dosage: 6 ML ED
     Route: 008
     Dates: start: 20041221, end: 20041221
  2. ANAPEINE [Suspect]
     Indication: EPIDURAL ANAESTHESIA
     Dosage: 72 ML ED
     Route: 008
     Dates: start: 20041221, end: 20041222
  3. MARCAINE [Concomitant]
  4. DROLEPTAN [Concomitant]
  5. FENTANEST [Concomitant]

REACTIONS (2)
  - MYELITIS [None]
  - PARAPLEGIA [None]
